FAERS Safety Report 4393237-1 (Version None)
Quarter: 2004Q3

REPORT INFORMATION
  Report Type: 
  Country: None (occurrence: None)
  Receive Date: 20040701
  Receipt Date: 20040609
  Transmission Date: 20050211
  Serious: Yes (Death, Hospitalization)
  Sender: FDA-Public Use
  Company Number: JP-JNJFOC-20031202798

PATIENT
  Age: 60 Year
  Sex: Male
  Weight: 55 kg

DRUGS (9)
  1. REMICADE [Suspect]
     Indication: RHEUMATOID ARTHRITIS
     Dosage: 3 MG/KG, 1 IN 1 AS NECESSARY, INTRAVENOUS DRIP
     Route: 041
     Dates: start: 20031120, end: 20031120
  2. REMICADE [Suspect]
     Indication: RHEUMATOID ARTHRITIS
     Dosage: 3 MG/KG, 1 IN 1 AS NECESSARY, INTRAVENOUS DRIP
     Route: 041
     Dates: start: 20031205, end: 20031205
  3. . [Concomitant]
  4. RHEUMATREX [Concomitant]
  5. PREDNISOLONE [Concomitant]
  6. BONALON (ALENDRONATE SODIUM) [Concomitant]
  7. CALCIUM LACTATE (CALCIUM LACTATE) [Concomitant]
  8. DEPAS (ETIZOLAM) [Concomitant]
  9. HALCION [Concomitant]

REACTIONS (19)
  - ANAEMIA [None]
  - CACHEXIA [None]
  - DEHYDRATION [None]
  - DISSEMINATED INTRAVASCULAR COAGULATION [None]
  - DRUG INTERACTION [None]
  - HEPATIC FUNCTION ABNORMAL [None]
  - HYPERKALAEMIA [None]
  - HYPONATRAEMIA [None]
  - MALIGNANT ASCITES [None]
  - METASTASES TO ABDOMINAL CAVITY [None]
  - METASTASES TO LIVER [None]
  - METASTASES TO STOMACH [None]
  - PANCREATIC CARCINOMA [None]
  - PERITONITIS [None]
  - RENAL CELL CARCINOMA STAGE UNSPECIFIED [None]
  - RENAL DISORDER [None]
  - RENAL IMPAIRMENT [None]
  - SALIVARY GLAND CANCER [None]
  - WHITE BLOOD CELL COUNT INCREASED [None]
